FAERS Safety Report 24444940 (Version 2)
Quarter: 2024Q4

REPORT INFORMATION
  Report Type: Report from Study
  Country: US (occurrence: US)
  Receive Date: 20241016
  Receipt Date: 20241017
  Transmission Date: 20250114
  Serious: No
  Sender: ROCHE
  Company Number: US-ROCHE-2857614

PATIENT
  Age: 54 Year
  Sex: Female

DRUGS (1)
  1. RITUXAN [Suspect]
     Active Substance: RITUXIMAB
     Indication: Neuromyelitis optica spectrum disorder
     Dosage: DATE OF TREATMENT: 23/JUL2021, 02/JUL/2021, 20/JUL/2022 DATE OF SERVICE: 21/JAN/2022, 24/JAN/2022, 0
     Route: 065
     Dates: start: 20220121

REACTIONS (2)
  - Off label use [Unknown]
  - No adverse event [Unknown]
